FAERS Safety Report 24707543 (Version 3)
Quarter: 2024Q4

REPORT INFORMATION
  Report Type: Spontaneous
  Country: US (occurrence: US)
  Receive Date: 20241206
  Receipt Date: 20241231
  Transmission Date: 20250115
  Serious: Yes (Death)
  Sender: SAREPTA THERAPEUTICS
  Company Number: US-SAREPTA THERAPEUTICS INC.-SRP2024-005342

PATIENT
  Age: 11 Year
  Sex: Male
  Weight: 54.6 kg

DRUGS (4)
  1. ELEVIDYS [Suspect]
     Active Substance: DELANDISTROGENE MOXEPARVOVEC-ROKL
     Indication: Duchenne muscular dystrophy
     Dosage: 30 MILLILITER, SINGLE (SRP-9001)
     Route: 042
     Dates: start: 20191211, end: 20191211
  2. GIVINOSTAT [Concomitant]
     Active Substance: GIVINOSTAT
     Indication: Duchenne muscular dystrophy
     Dosage: 44.3 MILLIGRAM, BID
     Route: 048
     Dates: start: 20241106
  3. LISINOPRIL [Concomitant]
     Active Substance: LISINOPRIL
     Indication: Cardiovascular event prophylaxis
     Dosage: 2.5 MILLIGRAM, QD
     Route: 048
     Dates: start: 20230413
  4. PREDNISONE [Concomitant]
     Active Substance: PREDNISONE
     Indication: Duchenne muscular dystrophy
     Dosage: 150 MILLIGRAM, SATURDAY AND SUNDAY
     Route: 048
     Dates: start: 2018

REACTIONS (3)
  - Death [Fatal]
  - Muscle spasms [Not Recovered/Not Resolved]
  - Myalgia [Not Recovered/Not Resolved]

NARRATIVE: CASE EVENT DATE: 20241101
